FAERS Safety Report 7252782-1 (Version None)
Quarter: 2011Q1

REPORT INFORMATION
  Report Type: 
  Country: None (occurrence: None)
  Receive Date: 20110129
  Receipt Date: 20100312
  Transmission Date: 20110831
  Serious: No
  Sender: FDA-Public Use
  Company Number: US-ABBOTT-10P-163-0620878-00

PATIENT
  Sex: Male
  Weight: 77.18 kg

DRUGS (2)
  1. HUMIRA [Suspect]
     Indication: PSORIASIS
     Dates: start: 20090424, end: 20100110
  2. HUMIRA [Suspect]
     Dates: start: 20100110

REACTIONS (5)
  - INSOMNIA [None]
  - EXTRAVASATION [None]
  - PRURITUS [None]
  - PSORIASIS [None]
  - DRUG EFFECT DECREASED [None]
